FAERS Safety Report 9856256 (Version 1)
Quarter: 2014Q1

REPORT INFORMATION
  Report Type: Spontaneous
  Country: NL (occurrence: NL)
  Receive Date: 20140130
  Receipt Date: 20140130
  Transmission Date: 20141002
  Serious: Yes (Death)
  Sender: FDA-Public Use
  Company Number: NL-ASTRAZENECA-2014SE05879

PATIENT
  Age: 30418 Day
  Sex: Male
  Weight: 70 kg

DRUGS (3)
  1. QUETIAPINE [Suspect]
     Indication: RESTLESSNESS
     Route: 048
     Dates: start: 2013
  2. ENTACAPONE [Suspect]
     Indication: PARKINSON^S DISEASE
     Route: 048
     Dates: start: 2013
  3. MADOPAR [Concomitant]
     Route: 048
     Dates: start: 2013

REACTIONS (1)
  - Cardiac death [Fatal]
